FAERS Safety Report 14027108 (Version 2)
Quarter: 2017Q4

REPORT INFORMATION
  Report Type: Spontaneous
  Country: JP (occurrence: JP)
  Receive Date: 20170929
  Receipt Date: 20171023
  Transmission Date: 20180321
  Serious: Yes (Other)
  Sender: FDA-Public Use
  Company Number: JP-AMGEN-JPNSP2017148469

PATIENT
  Age: 8 Year
  Sex: Female

DRUGS (2)
  1. CLADRIBINE. [Suspect]
     Active Substance: CLADRIBINE
     Indication: HISTIOCYTIC SARCOMA
     Dosage: 9 MG/M2, UNK
     Route: 041
  2. GRAN [Suspect]
     Active Substance: FILGRASTIM
     Indication: NEUTROPENIA
     Dosage: UNK
     Route: 065

REACTIONS (3)
  - Acute respiratory distress syndrome [Unknown]
  - Streptococcal sepsis [Unknown]
  - Febrile neutropenia [Unknown]
